FAERS Safety Report 4842420-7 (Version None)
Quarter: 2005Q4

REPORT INFORMATION
  Report Type: 
  Country: None (occurrence: None)
  Receive Date: 20051129
  Receipt Date: 20051116
  Transmission Date: 20060501
  Serious: Yes (Life-Threatening, Hospitalization)
  Sender: FDA-Public Use
  Company Number: GXKR2005US01980

PATIENT
  Age: 72 Year
  Sex: Male

DRUGS (3)
  1. LEVODOPA+CARBIDOPA (NGX) (CARBIDOPA, LEVODOPA) 100MG/25MG [Suspect]
     Indication: PARKINSON'S DISEASE
     Dosage: 1/2 TABLET, Q3H
  2. SELEGELINE HYDROCHLORIDE [Concomitant]
  3. PRAMIPEXOLE (PRAMIPEXOLE) [Concomitant]

REACTIONS (13)
  - BLOOD URINE PRESENT [None]
  - DEHYDRATION [None]
  - DRUG WITHDRAWAL SYNDROME [None]
  - HALLUCINATION [None]
  - HYPOTENSION [None]
  - HYPOVENTILATION [None]
  - INCONTINENCE [None]
  - MUSCLE INJURY [None]
  - NEUROLEPTIC MALIGNANT SYNDROME [None]
  - PROTEIN URINE PRESENT [None]
  - PSEUDOMONAS INFECTION [None]
  - RENAL IMPAIRMENT [None]
  - TACHYCARDIA [None]
